FAERS Safety Report 4671154-7 (Version None)
Quarter: 2005Q2

REPORT INFORMATION
  Report Type: 
  Country: None (occurrence: None)
  Receive Date: 20050523
  Receipt Date: 20050506
  Transmission Date: 20051028
  Serious: Yes (Hospitalization)
  Sender: FDA-Public Use
  Company Number: CERZ-10773

PATIENT
  Age: 6 Year
  Sex: Female
  Weight: 12.4 kg

DRUGS (13)
  1. CEREZYME [Suspect]
     Indication: GAUCHER'S DISEASE
     Dosage: 600 UNITS Q2WKS IV
     Route: 042
     Dates: start: 20010315
  2. CLONAZEPAM [Concomitant]
  3. ZONISAMIDE [Concomitant]
  4. DANTROLENE SODIUM [Concomitant]
  5. DIAZEPAM [Concomitant]
  6. TRICHLORETYL PHOSPHATE [Concomitant]
  7. CARBOCYSTEINE [Concomitant]
  8. AMBROXOL HYDROCHLORIDE [Concomitant]
  9. MOSAPRIDE CITRATE [Concomitant]
  10. SODIUM/POTASSIUM/MAGNESIUM [Concomitant]
  11. PEMIROLAST [Concomitant]
  12. LEVOFLOXACIN [Concomitant]
  13. FAMOTIDINE [Concomitant]

REACTIONS (12)
  - ANAL FISSURE [None]
  - BLOOD AMYLASE INCREASED [None]
  - CONDITION AGGRAVATED [None]
  - CONSTIPATION [None]
  - CYSTITIS [None]
  - EYE DISCHARGE [None]
  - INSOMNIA [None]
  - REFLUX OESOPHAGITIS [None]
  - RESPIRATORY FAILURE [None]
  - RESPIRATORY TRACT CONGESTION [None]
  - RHINORRHOEA [None]
  - URINARY RETENTION [None]
